FAERS Safety Report 4924731-X (Version None)
Quarter: 2006Q1

REPORT INFORMATION
  Report Type: 
  Country: None (occurrence: None)
  Receive Date: 20060222
  Receipt Date: 20060210
  Transmission Date: 20060701
  Serious: Yes (Hospitalization)
  Sender: FDA-Public Use
  Company Number: KII-2006-0020997

PATIENT
  Age: 38 Year
  Sex: Female

DRUGS (2)
  1. OXYCONTIN [Suspect]
     Dosage: ORAL
     Route: 048
  2. CODEINE (CODEINE) [Suspect]
     Dosage: ORAL
     Route: 048

REACTIONS (4)
  - AGITATION [None]
  - ANXIETY [None]
  - HEART RATE DECREASED [None]
  - LISTLESS [None]
